FAERS Safety Report 5626053-0 (Version None)
Quarter: 2008Q1

REPORT INFORMATION
  Report Type: 
  Country: None (occurrence: None)
  Receive Date: 20080214
  Receipt Date: 20080204
  Transmission Date: 20080703
  Serious: Yes (Hospitalization)
  Sender: FDA-Public Use
  Company Number: FR-GENENTECH-254400

PATIENT
  Sex: Male
  Weight: 81 kg

DRUGS (13)
  1. BEVACIZUMAB [Suspect]
     Indication: COLORECTAL CANCER METASTATIC
     Dosage: 610 MG, Q2W
     Route: 042
     Dates: start: 20071205
  2. CAPECITABINE [Suspect]
     Indication: COLORECTAL CANCER METASTATIC
     Dosage: 2450 MG, UNK
     Route: 048
     Dates: start: 20071227
  3. CAMPTO [Suspect]
     Indication: COLORECTAL CANCER METASTATIC
     Dosage: 270 MG, UNK
     Route: 042
     Dates: start: 20071227
  4. TRIFLUCAN [Concomitant]
     Indication: DRUG USE FOR UNKNOWN INDICATION
     Dates: start: 20070615
  5. MEDICATION (UNK INGREDIENT) [Concomitant]
     Indication: DRUG USE FOR UNKNOWN INDICATION
  6. ZOMETA [Concomitant]
     Indication: DRUG USE FOR UNKNOWN INDICATION
  7. ZYLORIC [Concomitant]
     Indication: DRUG USE FOR UNKNOWN INDICATION
  8. AMLOR [Concomitant]
     Indication: DRUG USE FOR UNKNOWN INDICATION
  9. BISOPROLOL FUMARATE [Concomitant]
     Indication: DRUG USE FOR UNKNOWN INDICATION
  10. DIFFU K [Concomitant]
     Indication: DRUG USE FOR UNKNOWN INDICATION
  11. CALCIUM SANDOZ [Concomitant]
     Indication: DRUG USE FOR UNKNOWN INDICATION
  12. NEORECORMON [Concomitant]
     Indication: DRUG USE FOR UNKNOWN INDICATION
  13. MEDICATION (UNK INGREDIENT) [Concomitant]

REACTIONS (2)
  - HYPOKALAEMIA [None]
  - PROTEINURIA [None]
